FAERS Safety Report 9782987 (Version 2)
Quarter: 2013Q4

REPORT INFORMATION
  Report Type: Spontaneous
  Country: DK (occurrence: DK)
  Receive Date: 20131226
  Receipt Date: 20131226
  Transmission Date: 20140711
  Serious: Yes (Hospitalization)
  Sender: FDA-Public Use
  Company Number: DK-TEVA-399143ISR

PATIENT
  Age: 68 Year
  Sex: Female
  Weight: 64 kg

DRUGS (7)
  1. DOCETAXEL [Suspect]
     Indication: BREAST CANCER
     Route: 042
     Dates: start: 20130220
  2. EPIRUBICIN [Suspect]
     Indication: BREAST CANCER
     Route: 042
  3. PEGFILGRASTIM [Suspect]
     Indication: PRODUCT USED FOR UNKNOWN INDICATION
     Dosage: UNK
     Route: 065
  4. FLUOROURACIL [Suspect]
     Indication: BREAST CANCER
     Route: 042
     Dates: start: 20121218
  5. CYCLOPHOSPHAMIDE [Suspect]
     Indication: BREAST CANCER
     Route: 042
     Dates: start: 20121218
  6. PERTUZUMAB [Concomitant]
     Indication: BREAST CANCER
     Route: 042
  7. TRASTUZUMAB [Concomitant]
     Indication: BREAST CANCER
     Route: 042

REACTIONS (2)
  - Musculoskeletal pain [Recovered/Resolved]
  - Skin infection [Recovering/Resolving]
